FAERS Safety Report 14976623 (Version 4)
Quarter: 2018Q4

REPORT INFORMATION
  Report Type: Report from Study
  Country: US (occurrence: US)
  Receive Date: 20180605
  Receipt Date: 20181002
  Transmission Date: 20190204
  Serious: Yes (Hospitalization)
  Sender: FDA-Public Use
  Company Number: US-ACTELION-A-NJ2018-173237

PATIENT
  Age: 42 Year
  Sex: Female
  Weight: 59.86 kg

DRUGS (3)
  1. REMODULIN [Concomitant]
     Active Substance: TREPROSTINIL
  2. ADCIRCA [Concomitant]
     Active Substance: TADALAFIL
  3. OPSUMIT [Suspect]
     Active Substance: MACITENTAN
     Indication: PULMONARY HYPERTENSION
     Dosage: 10 MG, QD
     Route: 048
     Dates: start: 201611

REACTIONS (8)
  - Chest pain [Recovered/Resolved]
  - Pain [Unknown]
  - Pneumonia [Unknown]
  - Headache [Unknown]
  - Pulmonary arterial hypertension [Unknown]
  - Head discomfort [Unknown]
  - Hospitalisation [Unknown]
  - Nerve block [Unknown]
